FAERS Safety Report 9094852 (Version 1)
Quarter: 2013Q1

REPORT INFORMATION
  Report Type: Spontaneous
  Country: US (occurrence: None)
  Receive Date: 20130214
  Receipt Date: 20130214
  Transmission Date: 20140127
  Serious: No
  Sender: FDA-Public Use
  Company Number: None

PATIENT
  Age: 32 Year
  Sex: Male
  Weight: 97.52 kg

DRUGS (1)
  1. CHANTIX 2MG PFIZER [Suspect]
     Indication: SMOKING CESSATION THERAPY
     Dosage: 2MG  3 TIMES A DAY  PO
     Route: 048
     Dates: start: 20121204, end: 20130115

REACTIONS (5)
  - Palpitations [None]
  - Hallucination [None]
  - Insomnia [None]
  - Depression [None]
  - Suicidal ideation [None]
